FAERS Safety Report 8335846-0 (Version None)
Quarter: 2012Q2

REPORT INFORMATION
  Report Type: 
  Country: None (occurrence: None)
  Receive Date: 20120501
  Receipt Date: 20120501
  Transmission Date: 20120825
  Serious: No
  Sender: FDA-Public Use
  Company Number: None

PATIENT
  Sex: Male

DRUGS (1)
  1. RIBAVIRIN [Suspect]
     Indication: HEPATITIS C
     Dosage: 400MG + 600MG Q AM + Q PM ORAL
     Route: 048
     Dates: start: 20120113

REACTIONS (5)
  - RENAL PAIN [None]
  - MALAISE [None]
  - ANAEMIA [None]
  - BLOOD PRESSURE INCREASED [None]
  - DIZZINESS [None]
